FAERS Safety Report 4752121-1 (Version None)
Quarter: 2005Q3

REPORT INFORMATION
  Report Type: 
  Country: None (occurrence: None)
  Receive Date: 20050825
  Receipt Date: 20050720
  Transmission Date: 20060218
  Serious: Yes (Hospitalization)
  Sender: FDA-Public Use
  Company Number: GB-JNJFOC-20050703878

PATIENT
  Age: 24 Year
  Sex: Female
  Weight: 45 kg

DRUGS (6)
  1. REMICADE [Suspect]
     Indication: CROHN'S DISEASE
     Route: 042
  2. FENTANYL [Concomitant]
     Indication: PAIN
     Route: 048
  3. MORPHINE [Concomitant]
     Indication: PAIN
     Route: 030
  4. BUDESONIDE [Concomitant]
     Indication: CROHN'S DISEASE
     Route: 048
  5. AZATHIOPRINE [Concomitant]
     Indication: CROHN'S DISEASE
     Route: 048
  6. MERCAPTOPURINE [Concomitant]
     Indication: CROHN'S DISEASE
     Route: 048

REACTIONS (4)
  - ARTHROPATHY [None]
  - LYMPHADENOPATHY [None]
  - PYREXIA [None]
  - RASH [None]
